FAERS Safety Report 9513791 (Version 1)
Quarter: 2013Q1

REPORT INFORMATION
  Report Type: Spontaneous
  Country: US (occurrence: None)
  Receive Date: 20130305
  Receipt Date: 20130305
  Transmission Date: 20140127
  Serious: Yes (Disabling)
  Sender: FDA-Public Use
  Company Number: 163-21880-12102372

PATIENT
  Age: 58 Year
  Sex: Male
  Weight: 104.33 kg

DRUGS (7)
  1. REVLIMID [Suspect]
     Indication: PLASMA CELL MYELOMA
     Route: 048
     Dates: start: 200811
  2. ATENOL (ATENOLOL) [Concomitant]
  3. CELEXA (CITALOPRAM HYDROBROMIDE) [Concomitant]
  4. COUMADIN (WARFARIN SODIUM) [Concomitant]
  5. FLAXSEED (LINSEED OIL) [Concomitant]
  6. FUROSEMIDE (FUROSEMIDE) [Concomitant]
  7. NORVASC (AMLODIPINE BESILATE) [Concomitant]

REACTIONS (1)
  - Upper respiratory tract infection [None]
